FAERS Safety Report 5591134-7 (Version None)
Quarter: 2008Q1

REPORT INFORMATION
  Report Type: 
  Country: None (occurrence: None)
  Receive Date: 20080110
  Receipt Date: 20080107
  Transmission Date: 20080703
  Serious: Yes (Disabling)
  Sender: FDA-Public Use
  Company Number: 2008SP000344

PATIENT
  Age: 70 Year
  Sex: Male
  Weight: 58 kg

DRUGS (14)
  1. TEMODAL [Suspect]
     Indication: GLIOBLASTOMA MULTIFORME
     Dosage: 75 MG/M2; QD; PO, 150 MG/M2; QD; PO, 150 MG/M2; QD; PO
     Route: 048
     Dates: start: 20061128, end: 20070109
  2. TEMODAL [Suspect]
     Indication: GLIOBLASTOMA MULTIFORME
     Dosage: 75 MG/M2; QD; PO, 150 MG/M2; QD; PO, 150 MG/M2; QD; PO
     Route: 048
     Dates: start: 20070206, end: 20070210
  3. TEMODAL [Suspect]
     Indication: GLIOBLASTOMA MULTIFORME
     Dosage: 75 MG/M2; QD; PO, 150 MG/M2; QD; PO, 150 MG/M2; QD; PO
     Route: 048
     Dates: start: 20070306, end: 20070310
  4. BAKTAR [Concomitant]
  5. BAKTAR [Concomitant]
  6. PHENOBAL [Concomitant]
  7. GASTER [Concomitant]
  8. SODIUM CHLORIDE INJ [Concomitant]
  9. MAGNESIUM OXIDE [Concomitant]
  10. SENNOSIDE [Concomitant]
  11. FLOMOX [Concomitant]
  12. ACETAMINOPHEN [Concomitant]
  13. DASEN [Concomitant]
  14. MAGLAX [Concomitant]

REACTIONS (2)
  - GENERAL PHYSICAL HEALTH DETERIORATION [None]
  - ORAL INTAKE REDUCED [None]
